FAERS Safety Report 4312324-7 (Version None)
Quarter: 2004Q1

REPORT INFORMATION
  Report Type: 
  Country: None (occurrence: None)
  Receive Date: 20040305
  Receipt Date: 20040302
  Transmission Date: 20041129
  Serious: Yes (Hospitalization)
  Sender: FDA-Public Use
  Company Number: FR-GLAXOSMITHKLINE-B0325277A

PATIENT
  Age: 17 Year
  Sex: Male
  Weight: 80 kg

DRUGS (13)
  1. FORTUM [Suspect]
     Indication: ENCEPHALITIS
     Route: 065
     Dates: start: 20040213
  2. AMIKACIN [Suspect]
     Indication: ENCEPHALITIS
     Dosage: 1.2G PER DAY
     Route: 065
     Dates: start: 20040206, end: 20040217
  3. FRAXIPARINE [Suspect]
     Dosage: .4IU PER DAY
     Route: 058
     Dates: start: 20040211
  4. CIFLOX [Suspect]
     Indication: ENCEPHALITIS
     Dosage: 1G PER DAY
     Route: 048
     Dates: start: 20040214, end: 20040216
  5. MOPRAL [Suspect]
     Dosage: 40MG UNKNOWN
     Route: 065
     Dates: start: 20040206
  6. PERFALGAN [Suspect]
     Route: 042
     Dates: start: 20040208
  7. ZOVIRAX [Concomitant]
     Route: 065
     Dates: start: 20040206, end: 20040211
  8. ROCEPHIN [Concomitant]
     Indication: ENCEPHALITIS
     Dosage: 2G PER DAY
     Route: 065
     Dates: start: 20040206, end: 20040213
  9. DIPRIVAN [Concomitant]
     Dosage: 360MG PER DAY
     Route: 042
     Dates: start: 20040206, end: 20040207
  10. MIDAZOLAM HCL [Concomitant]
     Route: 065
     Dates: start: 20040206, end: 20040212
  11. SUFENTA [Concomitant]
     Route: 042
     Dates: start: 20040206, end: 20040212
  12. JOSACINE [Concomitant]
     Route: 048
     Dates: start: 20040212
  13. TEGELINE [Concomitant]
     Route: 042
     Dates: start: 20040213, end: 20040214

REACTIONS (4)
  - ALANINE AMINOTRANSFERASE INCREASED [None]
  - ASPARTATE AMINOTRANSFERASE INCREASED [None]
  - CYTOLYTIC HEPATITIS [None]
  - HEPATITIS [None]
